FAERS Safety Report 7428350-5 (Version None)
Quarter: 2011Q2

REPORT INFORMATION
  Report Type: 
  Country: None (occurrence: None)
  Receive Date: 20110412
  Receipt Date: 20110405
  Transmission Date: 20111010
  Serious: Yes (Other)
  Sender: FDA-Public Use
  Company Number: 1000019459

PATIENT
  Age: 46 Year
  Sex: Female

DRUGS (2)
  1. LEXAPRO [Suspect]
     Indication: ANXIETY
     Dosage: 1.25 MG (1.25 MG,1 IN 1 D),ORAL
     Route: 048
     Dates: start: 20060608, end: 20061206
  2. HYZAAR (HYDROCHLOROTHIAZIDE, LOSARTAN) (HYDROCHLOROTHIAZIDE, LOSARTAN) [Concomitant]

REACTIONS (26)
  - TOURETTE'S DISORDER [None]
  - INSOMNIA [None]
  - BUTTERFLY RASH [None]
  - HEADACHE [None]
  - PAIN IN EXTREMITY [None]
  - ANXIETY [None]
  - GAIT DISTURBANCE [None]
  - DYSKINESIA [None]
  - PSORIASIS [None]
  - FEELING ABNORMAL [None]
  - RESTLESS LEGS SYNDROME [None]
  - HYPERSOMNIA [None]
  - DRUG DOSE OMISSION [None]
  - TINNITUS [None]
  - DISTURBANCE IN ATTENTION [None]
  - POSTURE ABNORMAL [None]
  - NECK PAIN [None]
  - DEPRESSION [None]
  - FALL [None]
  - NAIL DISORDER [None]
  - ASTHENIA [None]
  - TREMOR [None]
  - CERVICOBRACHIAL SYNDROME [None]
  - VISUAL IMPAIRMENT [None]
  - ARTHRALGIA [None]
  - PARAESTHESIA [None]
